FAERS Safety Report 12217932 (Version 1)
Quarter: 2016Q1

REPORT INFORMATION
  Report Type: Spontaneous
  Country: FR (occurrence: FR)
  Receive Date: 20160329
  Receipt Date: 20160329
  Transmission Date: 20160526
  Serious: Yes (Other)
  Sender: FDA-Public Use
  Company Number: FR-PFIZER INC-2016176241

PATIENT
  Age: 62 Year
  Sex: Male

DRUGS (2)
  1. INSPRA [Suspect]
     Active Substance: EPLERENONE
     Indication: CARDIAC FAILURE
  2. LITHIUM. [Interacting]
     Active Substance: LITHIUM
     Indication: BIPOLAR DISORDER

REACTIONS (6)
  - Renal failure [Unknown]
  - Condition aggravated [Unknown]
  - Anaemia [Unknown]
  - Drug interaction [Unknown]
  - Mania [Unknown]
  - Rhabdomyolysis [Unknown]
